FAERS Safety Report 20425057 (Version 1)
Quarter: 2022Q1

REPORT INFORMATION
  Report Type: Report from Study
  Country: US (occurrence: US)
  Receive Date: 20220204
  Receipt Date: 20220204
  Transmission Date: 20220424
  Serious: No
  Sender: FDA-Public Use
  Company Number: US-EXELIXIS-CABO-21038071

PATIENT
  Sex: Male
  Weight: 72.562 kg

DRUGS (6)
  1. CABOMETYX [Suspect]
     Active Substance: CABOZANTINIB S-MALATE
     Indication: Renal cancer
     Dosage: 40 MG, QD
     Route: 048
     Dates: start: 202011
  2. CABOMETYX [Suspect]
     Active Substance: CABOZANTINIB S-MALATE
     Dosage: 20 MG, QD
     Route: 048
  3. ANDROGEL [Concomitant]
     Active Substance: TESTOSTERONE
  4. CABERGOLINE [Concomitant]
     Active Substance: CABERGOLINE
  5. FISH OIL [Concomitant]
     Active Substance: FISH OIL
  6. GRAPESEED OIL [Concomitant]

REACTIONS (1)
  - Drug intolerance [Unknown]
